FAERS Safety Report 11119612 (Version 1)
Quarter: 2015Q2

REPORT INFORMATION
  Report Type: Report from Study
  Country: BR (occurrence: BR)
  Receive Date: 20150518
  Receipt Date: 20150518
  Transmission Date: 20150821
  Serious: Yes (Other)
  Sender: FDA-Public Use
  Company Number: PHHY2015BR057111

PATIENT
  Sex: Female
  Weight: 54 kg

DRUGS (2)
  1. EXJADE [Suspect]
     Active Substance: DEFERASIROX
     Indication: THALASSAEMIA
     Dosage: 3 DF, QD (AT NIGHT)
     Route: 065
  2. FERRIPROX [Suspect]
     Active Substance: DEFERIPRONE
     Indication: PRODUCT USED FOR UNKNOWN INDICATION
     Route: 065

REACTIONS (7)
  - Mental disorder [Unknown]
  - Malaise [Unknown]
  - Vomiting [Unknown]
  - Wrong technique in drug usage process [Unknown]
  - Weight decreased [Unknown]
  - Serum ferritin increased [Unknown]
  - Dysentery [Unknown]
